FAERS Safety Report 18707375 (Version 1)
Quarter: 2021Q1

REPORT INFORMATION
  Report Type: Spontaneous
  Country: US (occurrence: US)
  Receive Date: 20210106
  Receipt Date: 20210106
  Transmission Date: 20210419
  Serious: No
  Sender: FDA-Public Use
  Company Number: US-PERRIGO-20US014003

PATIENT
  Age: 70 Year
  Sex: Male
  Weight: 88.44 kg

DRUGS (1)
  1. MIGRAINE FORMULA [Suspect]
     Active Substance: ACETAMINOPHEN\ASPIRIN\CAFFEINE
     Indication: ABDOMINAL DISCOMFORT
     Dosage: 2 TABLETS, PRN
     Route: 048
     Dates: start: 202008, end: 20200922

REACTIONS (2)
  - Off label use [Recovered/Resolved]
  - Wrong technique in product usage process [Recovered/Resolved]

NARRATIVE: CASE EVENT DATE: 202008
